FAERS Safety Report 16989224 (Version 1)
Quarter: 2019Q4

REPORT INFORMATION
  Report Type: Spontaneous
  Country: US (occurrence: US)
  Receive Date: 20190919
  Receipt Date: 20190919
  Transmission Date: 20200122
  Serious: Yes (Hospitalization)
  Sender: FDA-Public Use
  Company Number: None

PATIENT
  Sex: Female

DRUGS (1)
  1. VERZENIO [Suspect]
     Active Substance: ABEMACICLIB
     Indication: BREAST CANCER FEMALE
     Route: 048
     Dates: start: 20180921

REACTIONS (8)
  - Medical induction of coma [None]
  - Pneumothorax [None]
  - Sepsis [None]
  - Hydronephrosis [None]
  - Pleural effusion [None]
  - Bacterial test positive [None]
  - Therapy non-responder [None]
  - Gait inability [None]
